FAERS Safety Report 16564645 (Version 1)
Quarter: 2019Q3

REPORT INFORMATION
  Report Type: Spontaneous
  Country: BR (occurrence: BR)
  Receive Date: 20190712
  Receipt Date: 20190712
  Transmission Date: 20191004
  Serious: Yes (Life-Threatening, Hospitalization, Other)
  Sender: FDA-Public Use
  Company Number: BR-IPSEN BIOPHARMACEUTICALS, INC.-2019-11717

PATIENT
  Age: 39 Year
  Sex: Male
  Weight: 82 kg

DRUGS (1)
  1. DYSPORT [Suspect]
     Active Substance: ABOBOTULINUMTOXINA
     Indication: SKIN COSMETIC PROCEDURE
     Dosage: 55 UNITS
     Route: 065
     Dates: start: 20190607, end: 20190607

REACTIONS (5)
  - Hypoglycaemia [Recovered/Resolved]
  - Off label use [Unknown]
  - Joint dislocation [Unknown]
  - Fall [Recovered/Resolved]
  - Altered state of consciousness [Recovered/Resolved]

NARRATIVE: CASE EVENT DATE: 2019
